FAERS Safety Report 4508373-6 (Version None)
Quarter: 2004Q4

REPORT INFORMATION
  Report Type: 
  Country: None (occurrence: None)
  Receive Date: 20041123
  Receipt Date: 20040120
  Transmission Date: 20050328
  Serious: No
  Sender: FDA-Public Use
  Company Number: US-GLAXOSMITHKLINE-A0494267A

PATIENT
  Age: 47 Year
  Sex: Female

DRUGS (1)
  1. WELLBUTRIN [Suspect]
     Indication: DEPRESSION
     Dosage: 150MG TWICE PER DAY
     Route: 048
     Dates: start: 20031001, end: 20040120

REACTIONS (4)
  - ANXIETY [None]
  - INSOMNIA [None]
  - NERVOUSNESS [None]
  - SOCIAL PHOBIA [None]
